FAERS Safety Report 26133608 (Version 1)
Quarter: 2025Q4

REPORT INFORMATION
  Report Type: Spontaneous
  Country: EU (occurrence: EU)
  Receive Date: 20251209
  Receipt Date: 20251209
  Transmission Date: 20260118
  Serious: Yes (Other)
  Sender: ALKEM
  Company Number: EU-ALKEM LABORATORIES LIMITED-FR-ALKEM-2025-09735

PATIENT
  Age: 70 Year
  Sex: Male

DRUGS (3)
  1. VANCOMYCIN [Suspect]
     Active Substance: VANCOMYCIN
     Indication: Product used for unknown indication
     Dosage: UNK
     Route: 065
  2. CILASTATIN [Suspect]
     Active Substance: CILASTATIN
     Indication: Product used for unknown indication
     Dosage: UNK
     Route: 065
  3. IMIPENEM [Suspect]
     Active Substance: IMIPENEM
     Indication: Product used for unknown indication
     Dosage: UNK
     Route: 065

REACTIONS (1)
  - Linear IgA disease [Unknown]
